FAERS Safety Report 4390348-1 (Version None)
Quarter: 2004Q2

REPORT INFORMATION
  Report Type: 
  Country: None (occurrence: None)
  Receive Date: 20040630
  Receipt Date: 20040616
  Transmission Date: 20050107
  Serious: Yes (Hospitalization, Other)
  Sender: FDA-Public Use
  Company Number: FRWYE722426APR04

PATIENT
  Age: 72 Year
  Sex: Female

DRUGS (12)
  1. EFFEXOR [Suspect]
     Dosage: 2 DOSE 1X PER 1 DAY ORAL
     Route: 048
     Dates: start: 20030101, end: 20040308
  2. EFFERALGAN CODEINE (PARACETAMOL/CODEINE PHOSPHATE) [Suspect]
     Dosage: ORAL
     Route: 048
     Dates: end: 20040308
  3. HALDOL [Suspect]
     Dosage: ORAL
     Route: 048
     Dates: end: 20040308
  4. AMITRIPTYLINE HYDROCHLORIDE [Suspect]
     Dosage: ORAL
     Route: 048
     Dates: end: 20040308
  5. PARKINANE (TRIHEXYPHENIDYL ) [Suspect]
     Dosage: ORAL
     Route: 048
     Dates: end: 20040308
  6. SOLIAN (AMISULPRIDE) [Suspect]
     Dosage: 1 DOSE 1X PER 1 DAY ORAL
     Route: 048
     Dates: end: 20040308
  7. STABLON (TIANEPTINE) [Suspect]
     Dosage: 3 DOSE 1X PER 1 DAY ORAL
     Route: 048
  8. LORAZEPAM [Suspect]
     Dosage: ORAL
     Route: 048
     Dates: end: 20040308
  9. PROPRANOLOL [Concomitant]
  10. PLAVIX [Concomitant]
  11. SERMION (NICERGOLINE) [Concomitant]
  12. STAGID (METFORMIN EMBONATE) [Concomitant]

REACTIONS (5)
  - CONDITION AGGRAVATED [None]
  - HYPERTENSION [None]
  - MEDICATION ERROR [None]
  - SEROTONIN SYNDROME [None]
  - TONGUE BITING [None]
